FAERS Safety Report 25685114 (Version 1)
Quarter: 2025Q3

REPORT INFORMATION
  Report Type: Spontaneous
  Country: US (occurrence: US)
  Receive Date: 20250815
  Receipt Date: 20250815
  Transmission Date: 20251021
  Serious: Yes (Other)
  Sender: ABBVIE
  Company Number: US-ABBVIE-6417116

PATIENT
  Age: 64 Year
  Sex: Female
  Weight: 78.925 kg

DRUGS (2)
  1. SAVELLA [Suspect]
     Active Substance: MILNACIPRAN HYDROCHLORIDE
     Indication: Fibromyalgia
     Dosage: FORM STRENGTH: 50?FORM STRENGTH UNITS: MILLIGRAM
     Route: 048
     Dates: start: 202507, end: 202507
  2. SAVELLA [Suspect]
     Active Substance: MILNACIPRAN HYDROCHLORIDE
     Indication: Fibromyalgia
     Route: 048
     Dates: start: 202506, end: 202507

REACTIONS (4)
  - Loss of consciousness [Recovered/Resolved]
  - Syncope [Recovering/Resolving]
  - Dizziness [Recovered/Resolved]
  - Contusion [Recovering/Resolving]

NARRATIVE: CASE EVENT DATE: 20250701
